FAERS Safety Report 14449136 (Version 1)
Quarter: 2018Q1

REPORT INFORMATION
  Report Type: Report from Study
  Country: None (occurrence: JP)
  Receive Date: 20180126
  Receipt Date: 20180126
  Transmission Date: 20180509
  Serious: Yes (Death)
  Sender: FDA-Public Use
  Company Number: JP-ABBVIE-17K-087-2199896-00

PATIENT
  Age: 68 Year
  Sex: Male
  Weight: 50 kg

DRUGS (4)
  1. DUODOPA [Suspect]
     Active Substance: CARBIDOPA\LEVODOPA
     Dosage: MD: 12 ML, CD: 4.7 ML/HR X 16 HR, ED: 2 ML/UNIT X 1
     Route: 050
     Dates: start: 20170728, end: 20171201
  2. ROTIGOTINE [Concomitant]
     Active Substance: ROTIGOTINE
     Indication: PRODUCT USED FOR UNKNOWN INDICATION
     Route: 062
     Dates: start: 20171101
  3. DUODOPA [Suspect]
     Active Substance: CARBIDOPA\LEVODOPA
     Indication: PARKINSON^S DISEASE
     Dosage: MD: 15 ML, CD: 4.7 ML/HR X 16 HR
     Route: 050
     Dates: start: 20170510, end: 20170527
  4. LEVODOPA/CARBIDOPA [Concomitant]
     Active Substance: CARBIDOPA\LEVODOPA
     Indication: PARKINSON^S DISEASE
     Dates: start: 20170527, end: 20170728

REACTIONS (3)
  - Death [Fatal]
  - Stoma site infection [Recovered/Resolved]
  - Malaise [Unknown]

NARRATIVE: CASE EVENT DATE: 20170823
